FAERS Safety Report 10417557 (Version 1)
Quarter: 2014Q3

REPORT INFORMATION
  Report Type: Spontaneous
  Country: DK (occurrence: DK)
  Receive Date: 20140829
  Receipt Date: 20140829
  Transmission Date: 20150326
  Serious: Yes (Hospitalization)
  Sender: FDA-Public Use
  Company Number: DK-ORION CORPORATION ORION PHARMA-14_00000950

PATIENT
  Age: 66 Year
  Sex: Female

DRUGS (6)
  1. COMTESS [Suspect]
     Active Substance: ENTACAPONE
     Indication: PARKINSON^S DISEASE
     Route: 065
  2. ENTACAPONE TEVA [Suspect]
     Active Substance: ENTACAPONE
     Indication: PARKINSON^S DISEASE
     Route: 065
     Dates: start: 2008
  3. REQUIP [Suspect]
     Active Substance: ROPINIROLE HYDROCHLORIDE
     Indication: PARKINSON^S DISEASE
     Route: 065
  4. STALEVO [Suspect]
     Active Substance: CARBIDOPA\ENTACAPONE\LEVODOPA
     Indication: PARKINSON^S DISEASE
     Route: 065
  5. LEVODOPA-BENSERAZIDE [Suspect]
     Active Substance: BENSERAZIDE\LEVODOPA
     Indication: PARKINSON^S DISEASE
     Route: 065
     Dates: start: 2008
  6. MADOPAR [Suspect]
     Active Substance: BENSERAZIDE HYDROCHLORIDE\LEVODOPA
     Indication: PARKINSON^S DISEASE
     Dosage: STRENGTH: 125
     Route: 065

REACTIONS (14)
  - Hallucination [Unknown]
  - Toxicity to various agents [Unknown]
  - Impaired self-care [Unknown]
  - Tooth fracture [Unknown]
  - Dry mouth [Unknown]
  - Dental caries [Unknown]
  - Back pain [Unknown]
  - Depression [Unknown]
  - Confusional state [Unknown]
  - Dysstasia [Unknown]
  - Dysarthria [Unknown]
  - Tooth loss [Unknown]
  - Dizziness [Unknown]
  - Nervousness [Unknown]

NARRATIVE: CASE EVENT DATE: 2011
